FAERS Safety Report 8203407-X (Version None)
Quarter: 2012Q1

REPORT INFORMATION
  Report Type: 
  Country: None (occurrence: None)
  Receive Date: 20120312
  Receipt Date: 20120301
  Transmission Date: 20120608
  Serious: Yes (Hospitalization)
  Sender: FDA-Public Use
  Company Number: US-ASTRAZENECA-2011SE55771

PATIENT
  Age: 55 Year
  Sex: Male
  Weight: 77.1 kg

DRUGS (3)
  1. VIAGRA [Concomitant]
     Indication: ERECTILE DYSFUNCTION
  2. NEXIUM [Suspect]
     Route: 048
  3. XANAX [Concomitant]
     Indication: ANXIETY
     Dosage: TID FREQUENCY

REACTIONS (8)
  - DRUG DOSE OMISSION [None]
  - DYSPNOEA [None]
  - GASTROOESOPHAGEAL REFLUX DISEASE [None]
  - ERECTILE DYSFUNCTION [None]
  - GENERALISED ANXIETY DISORDER [None]
  - DEHYDRATION [None]
  - NAUSEA [None]
  - VOMITING [None]
